FAERS Safety Report 9200970 (Version 3)
Quarter: 2014Q2

REPORT INFORMATION
  Report Type: Spontaneous
  Country: DE (occurrence: DE)
  Receive Date: 20130401
  Receipt Date: 20140606
  Transmission Date: 20141212
  Serious: Yes (Hospitalization)
  Sender: FDA-Public Use
  Company Number: DE-JNJFOC-20130315853

PATIENT
  Age: 74 Year
  Sex: Female
  Weight: 68 kg

DRUGS (14)
  1. XARELTO [Suspect]
     Indication: CEREBROVASCULAR ACCIDENT PROPHYLAXIS
     Route: 048
     Dates: start: 20120624, end: 20130211
  2. XARELTO [Suspect]
     Indication: ATRIAL FIBRILLATION
     Route: 048
     Dates: start: 20120624, end: 20130211
  3. METFORMIN [Concomitant]
     Route: 065
  4. AMINEURIN [Concomitant]
     Route: 065
  5. PANTOPRAZOLE [Concomitant]
     Route: 065
  6. LETROZOLE [Concomitant]
     Route: 065
  7. ALLOPURINOL [Concomitant]
     Route: 065
  8. RAMIPRIL [Concomitant]
     Route: 065
  9. TILIDIN [Concomitant]
     Route: 065
  10. MARCUMAR [Concomitant]
     Route: 065
  11. EZETROL [Concomitant]
     Route: 065
  12. EUTHYROX [Concomitant]
     Route: 065
  13. TOREM [Concomitant]
     Route: 065
  14. BISOPROLOL [Concomitant]
     Route: 065

REACTIONS (6)
  - Dyspnoea [Recovering/Resolving]
  - Subcutaneous haematoma [Recovered/Resolved]
  - Blood count abnormal [Recovering/Resolving]
  - Blood iron abnormal [Recovered/Resolved]
  - Pulmonary oedema [Recovered/Resolved]
  - Liver function test abnormal [Recovered/Resolved]
